FAERS Safety Report 7641363-3 (Version None)
Quarter: 2011Q3

REPORT INFORMATION
  Report Type: 
  Country: None (occurrence: None)
  Receive Date: 20110728
  Receipt Date: 20110720
  Transmission Date: 20111222
  Serious: No
  Sender: FDA-Public Use
  Company Number: CH-JNJFOC-20110708227

PATIENT
  Age: 80 Year
  Sex: Female

DRUGS (1)
  1. DURAGESIC-12 [Suspect]
     Indication: PRODUCT USED FOR UNKNOWN INDICATION
     Route: 062
     Dates: start: 20110701

REACTIONS (3)
  - NAUSEA [None]
  - DRUG ADMINISTERED AT INAPPROPRIATE SITE [None]
  - VOMITING [None]
